FAERS Safety Report 9059952 (Version 1)
Quarter: 2013Q1

REPORT INFORMATION
  Report Type: Spontaneous
  Country: US (occurrence: US)
  Receive Date: 20130212
  Receipt Date: 20130212
  Transmission Date: 20140127
  Serious: Yes (Other)
  Sender: FDA-Public Use
  Company Number: US-CELGENEUS-163-21660-13020585

PATIENT
  Sex: 0

DRUGS (1)
  1. ABRAXANE [Suspect]
     Indication: LUNG NEOPLASM MALIGNANT
     Route: 041

REACTIONS (1)
  - Interstitial lung disease [Unknown]
